FAERS Safety Report 24436243 (Version 2)
Quarter: 2024Q4

REPORT INFORMATION
  Report Type: Report from Study
  Country: US (occurrence: US)
  Receive Date: 20241015
  Receipt Date: 20241218
  Transmission Date: 20250115
  Serious: Yes (Other)
  Sender: NOVARTIS
  Company Number: US-002147023-NVSC2024US198862

PATIENT
  Sex: Female

DRUGS (1)
  1. KESIMPTA [Suspect]
     Active Substance: OFATUMUMAB
     Indication: Relapsing multiple sclerosis
     Dosage: UNK
     Route: 065
     Dates: start: 20240915

REACTIONS (7)
  - Intracranial pressure increased [Unknown]
  - Altered visual depth perception [Unknown]
  - Menstrual disorder [Unknown]
  - Muscle spasms [Unknown]
  - Balance disorder [Unknown]
  - Influenza like illness [Unknown]
  - Pain [Unknown]
